FAERS Safety Report 10886289 (Version 1)
Quarter: 2015Q1

REPORT INFORMATION
  Report Type: Spontaneous
  Country: DE (occurrence: DE)
  Receive Date: 20150304
  Receipt Date: 20150304
  Transmission Date: 20150721
  Serious: Yes (Hospitalization)
  Sender: FDA-Public Use
  Company Number: DE-TEVA-544227GER

PATIENT
  Age: 7 Year
  Sex: Female

DRUGS (2)
  1. OXYGEN, NITROUS OXIDE (GAS MIX) [Interacting]
     Active Substance: NITROUS OXIDE\OXYGEN
     Indication: SEDATIVE THERAPY
     Dosage: 50%/50% GAS MIX; VIA MASK INSUFFLATION
     Route: 045
  2. METHOTREXATE [Suspect]
     Active Substance: METHOTREXATE
     Indication: B PRECURSOR TYPE ACUTE LEUKAEMIA
     Dosage: 3 DOSES
     Route: 037

REACTIONS (9)
  - Tetany [None]
  - Coma scale abnormal [None]
  - Dysarthria [None]
  - Neutropenia [None]
  - C-reactive protein increased [None]
  - Vasogenic cerebral oedema [None]
  - Neurotoxicity [Recovered/Resolved with Sequelae]
  - Drug interaction [Recovered/Resolved with Sequelae]
  - Somnolence [None]
